FAERS Safety Report 15347013 (Version 2)
Quarter: 2018Q3

REPORT INFORMATION
  Report Type: Report from Study
  Country: BR (occurrence: BR)
  Receive Date: 20180904
  Receipt Date: 20180911
  Transmission Date: 20181010
  Serious: Yes (Hospitalization, Other)
  Sender: FDA-Public Use
  Company Number: PHHY2018BR089831

PATIENT
  Sex: Male
  Weight: 70 kg

DRUGS (6)
  1. ALLOPURINOL. [Concomitant]
     Active Substance: ALLOPURINOL
     Indication: PROPHYLAXIS
     Dosage: 1 DF, QD (10 YEARS AGO)
     Route: 048
  2. AMIODARONE [Concomitant]
     Active Substance: AMIODARONE
     Indication: ARRHYTHMIA
     Dosage: 1 DF, UNK (MONDAY TO FRIDAY) (5 YEARS AGO)
     Route: 048
  3. EXELON PATCH [Suspect]
     Active Substance: RIVASTIGMINE
     Indication: DEMENTIA
     Dosage: 9.5 MG, QD PATCH 10 (CM2)
     Route: 062
     Dates: start: 20170709, end: 20170807
  4. SIMVASTATIN. [Concomitant]
     Active Substance: SIMVASTATIN
     Indication: PROPHYLAXIS
     Dosage: 1 DF, QD (4 YEARS AGO)
     Route: 048
  5. QUETIAPINE. [Concomitant]
     Active Substance: QUETIAPINE
     Indication: DEMENTIA
     Dosage: 1 DF, BID (2 YEARS AGO)
     Route: 048
  6. CARVEDILOL. [Concomitant]
     Active Substance: CARVEDILOL
     Indication: ARRHYTHMIA
     Dosage: 1 DF, BID (2 YEARS AGO)
     Route: 048

REACTIONS (10)
  - Aggression [Not Recovered/Not Resolved]
  - Mental disorder [Not Recovered/Not Resolved]
  - Sepsis [Not Recovered/Not Resolved]
  - Shock [Unknown]
  - Confusional state [Not Recovered/Not Resolved]
  - Dementia [Not Recovered/Not Resolved]
  - Drug ineffective [Unknown]
  - Pneumonia [Not Recovered/Not Resolved]
  - Vomiting [Not Recovered/Not Resolved]
  - Memory impairment [Not Recovered/Not Resolved]
